FAERS Safety Report 9162048 (Version 1)
Quarter: 2013Q1

REPORT INFORMATION
  Report Type: Spontaneous
  Country: US (occurrence: None)
  Receive Date: 20130225
  Receipt Date: 20130225
  Transmission Date: 20140127
  Serious: Yes (Hospitalization, Other)
  Sender: FDA-Public Use
  Company Number: USA/USA/13/0028200

PATIENT
  Sex: Female

DRUGS (17)
  1. FLUCONAZOLE (FLUCONAZOLE) [Suspect]
     Route: 064
  2. FLUCONAZOLE (FLUCONAZOLE) [Suspect]
     Route: 064
  3. FLUCONAZOLE (FLUCONAZOLE) [Suspect]
     Route: 064
  4. FLUCONAZOLE (FLUCONAZOLE) [Suspect]
     Route: 064
  5. FLUCONAZOLE (FLUCONAZOLE) [Suspect]
     Route: 064
  6. FLUCONAZOLE (FLUCONAZOLE) [Suspect]
     Route: 064
  7. FLUCONAZOLE (FLUCONAZOLE) [Suspect]
     Route: 064
  8. FLUCONAZOLE (FLUCONAZOLE) [Suspect]
     Route: 064
  9. FLUCONAZOLE (FLUCONAZOLE) [Suspect]
     Route: 064
  10. AMOXICILLIN [Suspect]
  11. FLUCONAZOLE (FLUCONAZOLE) [Suspect]
  12. TERCONAZOLE [Suspect]
  13. AMPICILLIN [Suspect]
  14. GENTAMICIN [Suspect]
  15. CEFAZOLIN (CEFAZOLIN) [Suspect]
  16. CLOTRIMAZOLE [Suspect]
  17. AZITHROMYCIN (AZITHROMYCIN) [Suspect]

REACTIONS (4)
  - Exposure during pregnancy [None]
  - Premature baby [None]
  - Premature separation of placenta [None]
  - Caesarean section [None]
